FAERS Safety Report 7610480-6 (Version None)
Quarter: 2011Q3

REPORT INFORMATION
  Report Type: 
  Country: None (occurrence: None)
  Receive Date: 20110715
  Receipt Date: 20110127
  Transmission Date: 20111222
  Serious: Yes (Other)
  Sender: FDA-Public Use
  Company Number: US-BAYER-200922312NA

PATIENT
  Age: 68 Year
  Sex: Male
  Weight: 96.599 kg

DRUGS (18)
  1. LISINOPRIL [Concomitant]
     Dosage: 40 MG, UNK
     Route: 048
  2. ANCEF [Concomitant]
     Dosage: 1 G, ONCE
     Route: 042
     Dates: start: 20070215
  3. PROPOFOL [Concomitant]
     Dosage: 60 MG, UNK
     Route: 042
     Dates: start: 20070219, end: 20070219
  4. TRASYLOL [Suspect]
     Indication: PRODUCT USED FOR UNKNOWN INDICATION
     Dosage: +#8220;50 FOR ONE HOUR, THEN OFF^
     Route: 042
     Dates: start: 20070219
  5. MAGNESIUM [Concomitant]
     Dosage: UNK
     Route: 042
     Dates: start: 20070219, end: 20070219
  6. DOPAMINE HCL [Concomitant]
     Dosage: UNK, RENAL DOSING
     Route: 042
     Dates: start: 20070219, end: 20070219
  7. VANCOMYCIN [Concomitant]
     Dosage: 1 G, ONCE
     Route: 042
     Dates: start: 20070215
  8. NORVASC [Concomitant]
     Dosage: 10 MG, UNK
     Route: 048
  9. MINOXIDIL [Concomitant]
     Dosage: 5 MG, UNK
     Route: 048
  10. COREG [Concomitant]
     Dosage: 50 MG, UNK
     Route: 048
  11. HEPARIN [Concomitant]
     Dosage: 30000 U, UNK
     Route: 042
     Dates: start: 20070219, end: 20070219
  12. PROTAMINE SULFATE [Concomitant]
     Dosage: 360 MG, UNK
     Route: 042
     Dates: start: 20070219, end: 20070219
  13. SEVOFLURANE [Concomitant]
     Dosage: UNK
     Dates: start: 20070219, end: 20070219
  14. VISIPAQUE [Concomitant]
     Dosage: 80 ML, UNK
     Route: 042
     Dates: start: 20070215
  15. ACETYLSALICYLIC ACID SRT [Concomitant]
     Dosage: 81 MG, UNK
     Route: 048
  16. LASIX [Concomitant]
     Dosage: 40 MG, UNK
     Route: 048
  17. MIDAZOLAM HCL [Concomitant]
     Dosage: 6 MG, UNK
     Route: 042
     Dates: start: 20070219, end: 20070219
  18. NITROGLYCERIN [Concomitant]
     Dosage: UNK, DRIP
     Route: 042
     Dates: start: 20070219, end: 20070219

REACTIONS (7)
  - STRESS [None]
  - FEAR [None]
  - RENAL INJURY [None]
  - RENAL FAILURE [None]
  - ANXIETY [None]
  - PAIN [None]
  - EMOTIONAL DISTRESS [None]
